FAERS Safety Report 25738483 (Version 1)
Quarter: 2025Q3

REPORT INFORMATION
  Report Type: Report from Study
  Country: US (occurrence: US)
  Receive Date: 20250829
  Receipt Date: 20250829
  Transmission Date: 20251021
  Serious: No
  Sender: CELLTRION
  Company Number: US-CELLTRION INC.-2025US022065

PATIENT

DRUGS (11)
  1. ADALIMUMAB-AATY [Suspect]
     Active Substance: ADALIMUMAB-AATY
     Indication: Psoriasis
     Dosage: 40 MG, Q2WEEKS
  2. ADALIMUMAB-AATY [Suspect]
     Active Substance: ADALIMUMAB-AATY
     Dosage: 40 MG, ONCE EVERY OTHER WEEK
     Route: 058
     Dates: start: 20250410
  3. ADALIMUMAB-AATY [Suspect]
     Active Substance: ADALIMUMAB-AATY
     Dosage: 40 MG, EVERY OTHER WEEK
     Route: 058
     Dates: start: 20250410
  4. ADALIMUMAB-AATY [Suspect]
     Active Substance: ADALIMUMAB-AATY
     Dosage: 40 MG, EVERY OTHER WEEK
     Route: 058
     Dates: start: 20250424
  5. ADALIMUMAB-AATY [Suspect]
     Active Substance: ADALIMUMAB-AATY
     Dosage: 40 MG, EVERY OTHER WEEK
     Route: 058
     Dates: start: 20250508
  6. ADALIMUMAB-AATY [Suspect]
     Active Substance: ADALIMUMAB-AATY
     Dosage: 40 MG, EVERY OTHER WEEK
     Route: 058
     Dates: start: 20250522
  7. ADALIMUMAB-AATY [Suspect]
     Active Substance: ADALIMUMAB-AATY
     Dosage: 40 MG, EVERY OTHER WEEK
     Route: 058
     Dates: start: 20250605
  8. ADALIMUMAB-AATY [Suspect]
     Active Substance: ADALIMUMAB-AATY
     Dosage: 40 MG, EVERY OTHER WEEK
     Route: 058
     Dates: start: 20250519
  9. ADALIMUMAB-AATY [Suspect]
     Active Substance: ADALIMUMAB-AATY
     Dosage: 40 MG, EVERY OTHER WEEK
     Route: 058
     Dates: start: 20250703
  10. ADALIMUMAB-AATY [Suspect]
     Active Substance: ADALIMUMAB-AATY
     Dosage: 40 MG, EVERY OTHER WEEK
     Route: 058
     Dates: start: 20250717
  11. ADALIMUMAB-AATY [Suspect]
     Active Substance: ADALIMUMAB-AATY
     Dosage: 40 MG, EVERY OTHER WEEK
     Route: 058
     Dates: start: 20250731

REACTIONS (4)
  - Injection site hypoaesthesia [Recovering/Resolving]
  - Injury associated with device [Recovered/Resolved]
  - Wrong technique in product usage process [Recovered/Resolved]
  - Accidental exposure to product [Recovered/Resolved]

NARRATIVE: CASE EVENT DATE: 20250703
